FAERS Safety Report 13712402 (Version 1)
Quarter: 2017Q3

REPORT INFORMATION
  Report Type: Spontaneous
  Country: US (occurrence: US)
  Receive Date: 20170703
  Receipt Date: 20170703
  Transmission Date: 20171127
  Serious: No
  Sender: FDA-Public Use
  Company Number: US-JNJFOC-20170515106

PATIENT
  Sex: Male
  Weight: 74.84 kg

DRUGS (3)
  1. FOLIC ACID. [Concomitant]
     Active Substance: FOLIC ACID
     Route: 065
  2. METHOTREXATE. [Concomitant]
     Active Substance: METHOTREXATE
     Route: 065
  3. STELARA [Suspect]
     Active Substance: USTEKINUMAB
     Indication: PSORIATIC ARTHROPATHY
     Dosage: AFTER THE FIRST TWO INITIATION DOSES, EVERY 3 MONTHS.
     Route: 058
     Dates: start: 2016

REACTIONS (3)
  - Influenza like illness [Unknown]
  - Diarrhoea [Unknown]
  - Pain [Unknown]
